FAERS Safety Report 5124462-X (Version None)
Quarter: 2006Q4

REPORT INFORMATION
  Report Type: 
  Country: None (occurrence: None)
  Receive Date: 20061006
  Receipt Date: 20060922
  Transmission Date: 20070319
  Serious: Yes (Death, Life-Threatening, Other)
  Sender: FDA-Public Use
  Company Number: 2006JP002888

PATIENT
  Sex: Female

DRUGS (5)
  1. PROGRAF [Suspect]
     Indication: BONE MARROW TRANSPLANT
     Dosage: SEE IMAGE, IV DRIP
     Route: 041
     Dates: start: 20060725, end: 20060728
  2. PROGRAF [Suspect]
     Indication: BONE MARROW TRANSPLANT
     Dosage: SEE IMAGE, IV DRIP
     Route: 041
     Dates: start: 20060729, end: 20060819
  3. PROGRAF [Suspect]
     Indication: BONE MARROW TRANSPLANT
     Dosage: SEE IMAGE, IV DRIP
     Route: 041
     Dates: start: 20060820, end: 20060821
  4. PROGRAF [Suspect]
     Indication: BONE MARROW TRANSPLANT
     Dosage: SEE IMAGE, IV DRIP
     Route: 041
     Dates: start: 20060822, end: 20060825
  5. FUNGUARD (MICAFUNGIN) [Suspect]
     Dosage: 50 MG, IV DRIP
     Route: 041
     Dates: start: 20060719, end: 20060821

REACTIONS (8)
  - BONE MARROW TRANSPLANT [None]
  - CONVULSION [None]
  - DEPRESSED LEVEL OF CONSCIOUSNESS [None]
  - HYPERGLYCAEMIA [None]
  - IMMUNOSUPPRESSANT DRUG LEVEL DECREASED [None]
  - IMMUNOSUPPRESSANT DRUG LEVEL INCREASED [None]
  - RESPIRATORY DISORDER [None]
  - THROMBOTIC MICROANGIOPATHY [None]
